FAERS Safety Report 4492120-0 (Version None)
Quarter: 2004Q3

REPORT INFORMATION
  Report Type: 
  Country: None (occurrence: None)
  Receive Date: 20040924
  Receipt Date: 20031029
  Transmission Date: 20050211
  Serious: Yes (Hospitalization)
  Sender: FDA-Public Use
  Company Number: 03P-163-0239145-00

PATIENT
  Age: 54 Year
  Sex: 0
  Weight: 80.7403 kg

DRUGS (3)
  1. KALETRA [Suspect]
     Dosage: 800 MG DAILY
     Dates: start: 20021209
  2. FUZEON [Suspect]
     Dosage: 90 MG, 2 IN  D, SUBCUTANEOUS
     Route: 058
  3. ATORVASTATIN [Concomitant]

REACTIONS (1)
  - DIZZINESS [None]
